FAERS Safety Report 6159131-0 (Version None)
Quarter: 2009Q2

REPORT INFORMATION
  Report Type: 
  Country: None (occurrence: None)
  Receive Date: 20090417
  Receipt Date: 20090413
  Transmission Date: 20091009
  Serious: Yes (Other)
  Sender: FDA-Public Use
  Company Number: CA-JNJFOC-20090400573

PATIENT
  Sex: Male
  Weight: 108.86 kg

DRUGS (3)
  1. REMICADE [Suspect]
     Route: 042
  2. REMICADE [Suspect]
     Indication: CROHN'S DISEASE
     Route: 042
  3. PURINETHOL [Concomitant]
     Indication: CROHN'S DISEASE
     Dosage: 2 CAPS EVERY 4 TO 6 HOURS

REACTIONS (5)
  - COLECTOMY [None]
  - CROHN'S DISEASE [None]
  - LIP SWELLING [None]
  - MYALGIA [None]
  - RASH GENERALISED [None]
